FAERS Safety Report 4702995-5 (Version None)
Quarter: 2005Q2

REPORT INFORMATION
  Report Type: 
  Country: None (occurrence: None)
  Receive Date: 20050629
  Receipt Date: 20050623
  Transmission Date: 20051028
  Serious: Yes (Hospitalization)
  Sender: FDA-Public Use
  Company Number: FR-ROCHE-408747

PATIENT
  Sex: Male

DRUGS (1)
  1. ROFERON-A [Suspect]
     Indication: HEPATITIS C
     Route: 065

REACTIONS (4)
  - CONDITION AGGRAVATED [None]
  - HAEMODIALYSIS [None]
  - HAEMOLYTIC URAEMIC SYNDROME [None]
  - RENAL FAILURE [None]
